FAERS Safety Report 13908231 (Version 1)
Quarter: 2017Q3

REPORT INFORMATION
  Report Type: Other
  Country: IT (occurrence: IT)
  Receive Date: 20170825
  Receipt Date: 20170825
  Transmission Date: 20171127
  Serious: Yes (Other)
  Sender: FDA-Public Use
  Company Number: IT-ALSI-201700275

PATIENT
  Age: 54 Year
  Sex: Male

DRUGS (2)
  1. OZONE [Suspect]
     Active Substance: OZONE
     Route: 024
  2. OXYGEN. [Suspect]
     Active Substance: OXYGEN
     Indication: INTERVERTEBRAL DISC PROTRUSION
     Route: 024

REACTIONS (2)
  - Blindness transient [Recovering/Resolving]
  - Off label use [Recovering/Resolving]
